FAERS Safety Report 12199710 (Version 3)
Quarter: 2018Q2

REPORT INFORMATION
  Report Type: Spontaneous
  Country: US (occurrence: US)
  Receive Date: 20160322
  Receipt Date: 20180426
  Transmission Date: 20180711
  Serious: Yes (Death, Hospitalization, Other)
  Sender: FDA-Public Use
  Company Number: US-PFIZER INC-2016164367

PATIENT
  Age: 88 Year
  Sex: Female
  Weight: 51 kg

DRUGS (3)
  1. REVATIO [Suspect]
     Active Substance: SILDENAFIL CITRATE
     Indication: PULMONARY HYPERTENSION
     Dosage: 20 MG, 3X/DAY
     Route: 048
  2. COUMADIN [Concomitant]
     Active Substance: WARFARIN SODIUM
     Dosage: UNK
     Dates: start: 2011
  3. REMODULIN [Concomitant]
     Active Substance: TREPROSTINIL
     Dosage: UNK

REACTIONS (12)
  - Renal failure [Fatal]
  - Impaired gastric emptying [Unknown]
  - Cardiac failure congestive [Fatal]
  - Ascites [Unknown]
  - Renal impairment [Unknown]
  - Organ failure [Unknown]
  - Gastric disorder [Unknown]
  - Scleroderma [Fatal]
  - Pulmonary hypertension [Fatal]
  - Pneumonia [Recovering/Resolving]
  - Cardiac disorder [Unknown]
  - Condition aggravated [Unknown]

NARRATIVE: CASE EVENT DATE: 201801
